FAERS Safety Report 10440502 (Version 1)
Quarter: 2014Q3

REPORT INFORMATION
  Report Type: Spontaneous
  Country: US (occurrence: US)
  Receive Date: 20140909
  Receipt Date: 20140909
  Transmission Date: 20150326
  Serious: No
  Sender: FDA-Public Use
  Company Number: US-BIOGENIDEC-2014BI091035

PATIENT
  Age: 67 Year
  Sex: Female

DRUGS (8)
  1. FENOFIBRATE. [Concomitant]
     Active Substance: FENOFIBRATE
  2. NEURONTIN [Concomitant]
     Active Substance: GABAPENTIN
  3. AMITRIPTYLINE HCI [Concomitant]
  4. LORAZEPAM. [Concomitant]
     Active Substance: LORAZEPAM
  5. COLCRYS [Concomitant]
     Active Substance: COLCHICINE
  6. LISINOPRIL. [Concomitant]
     Active Substance: LISINOPRIL
  7. TECFIDERA [Suspect]
     Active Substance: DIMETHYL FUMARATE
     Indication: MULTIPLE SCLEROSIS
     Route: 048
     Dates: start: 20140613
  8. VICODIN [Concomitant]
     Active Substance: ACETAMINOPHEN\HYDROCODONE BITARTRATE

REACTIONS (3)
  - Vomiting [Unknown]
  - Fatigue [Unknown]
  - Pruritus [Unknown]
